FAERS Safety Report 21363123 (Version 1)
Quarter: 2022Q3

REPORT INFORMATION
  Report Type: Report from Study
  Country: KR (occurrence: None)
  Receive Date: 20220922
  Receipt Date: 20220922
  Transmission Date: 20221026
  Serious: Yes (Other)
  Sender: FDA-Public Use
  Company Number: KR-Unichem Pharmaceuticals (USA) Inc-UCM202209-000965

PATIENT
  Age: 78 Year
  Sex: Female

DRUGS (1)
  1. VALSARTAN [Suspect]
     Active Substance: VALSARTAN
     Indication: Hypertension
     Dosage: 80

REACTIONS (1)
  - Drug-induced liver injury [Recovered/Resolved]
